FAERS Safety Report 9562221 (Version 1)
Quarter: 2013Q3

REPORT INFORMATION
  Report Type: Report from Study
  Country: BR (occurrence: BR)
  Receive Date: 20130927
  Receipt Date: 20130927
  Transmission Date: 20140515
  Serious: Yes (Hospitalization, Other)
  Sender: FDA-Public Use
  Company Number: PHHY2013BR107395

PATIENT
  Age: 62 Year
  Sex: Female

DRUGS (5)
  1. FORASEQ [Suspect]
     Dosage: UNK UKN, UNK
  2. INDACATEROL [Concomitant]
     Dosage: 300 UG, QD
  3. VARENICLINE [Concomitant]
     Dosage: UNK UKN, UNK
  4. ROFLUMILAST [Concomitant]
     Dosage: UNK UKN, UNK
  5. NICOTINE [Concomitant]
     Indication: SMOKING CESSATION THERAPY
     Dosage: UNK UKN, UNK

REACTIONS (4)
  - Condition aggravated [Unknown]
  - Fatigue [Unknown]
  - Diarrhoea [Recovered/Resolved]
  - Cough [Unknown]
